FAERS Safety Report 9528804 (Version 1)
Quarter: 2013Q2

REPORT INFORMATION
  Report Type: Spontaneous
  Country: US (occurrence: None)
  Receive Date: 20130401
  Receipt Date: 20130401
  Transmission Date: 20140414
  Serious: Yes (Other)
  Sender: FDA-Public Use
  Company Number: PHEH2012US023580

PATIENT
  Sex: 0

DRUGS (1)
  1. EXELON PATCH (RIVASTIGMINE) TRANS-THERAPEUTIC SYSTEM [Suspect]
     Dosage: 4.6 MG PER 24 HRS, TRANSDERMAL
     Route: 062

REACTIONS (1)
  - Convulsion [None]
